FAERS Safety Report 6412770-1 (Version None)
Quarter: 2009Q4

REPORT INFORMATION
  Report Type: 
  Country: None (occurrence: None)
  Receive Date: 20091023
  Receipt Date: 20091019
  Transmission Date: 20100525
  Serious: Yes (Life-Threatening, Hospitalization, Other)
  Sender: FDA-Public Use
  Company Number: FR-BAYER-200935833GPV

PATIENT
  Age: 47 Year
  Sex: Male

DRUGS (2)
  1. CIFLOX [Suspect]
     Indication: PROSTATITIS
     Route: 048
     Dates: start: 20091001
  2. ANTIEPILEPTIC [Concomitant]
     Indication: DRUG USE FOR UNKNOWN INDICATION
     Dosage: OVERDOSAGE
     Route: 065

REACTIONS (1)
  - GRAND MAL CONVULSION [None]
